FAERS Safety Report 13008240 (Version 1)
Quarter: 2016Q4

REPORT INFORMATION
  Report Type: Spontaneous
  Country: US (occurrence: US)
  Receive Date: 20161208
  Receipt Date: 20161208
  Transmission Date: 20170207
  Serious: No
  Sender: FDA-Public Use
  Company Number: US-TEVA-702040USA

PATIENT
  Sex: Male

DRUGS (2)
  1. FLUOCINONIDE. [Concomitant]
     Active Substance: FLUOCINONIDE
  2. DICLOFENAC SODIUM GEL 3% [Suspect]
     Active Substance: DICLOFENAC SODIUM
     Indication: PAIN
     Route: 061

REACTIONS (7)
  - Pain [Unknown]
  - Discomfort [Unknown]
  - Blister [Unknown]
  - Insomnia [Unknown]
  - Skin disorder [Unknown]
  - Pruritus [Unknown]
  - Erythema [Unknown]
